FAERS Safety Report 6111303-7 (Version None)
Quarter: 2009Q1

REPORT INFORMATION
  Report Type: 
  Country: None (occurrence: None)
  Receive Date: 20090310
  Receipt Date: 20090310
  Transmission Date: 20090719
  Serious: No
  Sender: FDA-Public Use
  Company Number: None

PATIENT
  Age: 14 Year
  Sex: Male
  Weight: 57.1532 kg

DRUGS (3)
  1. SINGULAIR [Suspect]
     Indication: ACUTE SINUSITIS
     Dosage: 10MG ONCE DAILY PO
     Route: 048
     Dates: start: 20090302, end: 20090309
  2. SINGULAIR [Suspect]
     Indication: ASTHMA
     Dosage: 10MG ONCE DAILY PO
     Route: 048
     Dates: start: 20090302, end: 20090309
  3. SINGULAIR [Suspect]
     Indication: HYPERSENSITIVITY
     Dosage: 10MG ONCE DAILY PO
     Route: 048
     Dates: start: 20090302, end: 20090309

REACTIONS (5)
  - DECREASED INTEREST [None]
  - FATIGUE [None]
  - FEELING ABNORMAL [None]
  - FLAT AFFECT [None]
  - SOCIAL AVOIDANT BEHAVIOUR [None]
